FAERS Safety Report 9723186 (Version 2)
Quarter: 2013Q4

REPORT INFORMATION
  Report Type: Report from Study
  Country: RU (occurrence: RU)
  Receive Date: 20131202
  Receipt Date: 20131202
  Transmission Date: 20140711
  Serious: Yes (Hospitalization)
  Sender: FDA-Public Use
  Company Number: RU-GALDERMA-RU13000456

PATIENT
  Age: 52 Year
  Sex: Male

DRUGS (1)
  1. CD07805/47 [Suspect]
     Indication: ROSACEA
     Dosage: DAILY 2 MG/CM? = APPROXIMATELY 1 G OF GEL AT 0.5%  ON FACE (5 REGIONS: RIGHT AND LEFT CHEEKS, FOREHE
     Route: 003
     Dates: start: 20130115, end: 20130209

REACTIONS (2)
  - Angioedema [Recovered/Resolved]
  - Urticaria [Recovered/Resolved]
